FAERS Safety Report 5354674-1 (Version None)
Quarter: 2007Q2

REPORT INFORMATION
  Report Type: 
  Country: None (occurrence: None)
  Receive Date: 20070612
  Receipt Date: 20070605
  Transmission Date: 20071010
  Serious: Yes (Hospitalization)
  Sender: FDA-Public Use
  Company Number: US-ROXANE LABORATORIES, INC-2007-BP-07589RO

PATIENT
  Age: 4 Year
  Sex: Male

DRUGS (5)
  1. MIDAZOLAM HCL [Suspect]
     Indication: SEDATION
     Dosage: TOTAL DOSE = 26 MG/KG
     Route: 042
  2. MORPHINE [Suspect]
     Indication: SEDATION
     Dosage: TOTAL DOSE = 18 MG/KG
     Route: 042
  3. LORAZEPAM [Suspect]
     Indication: STATUS EPILEPTICUS
     Dosage: 1 MG X ONCE
  4. FENTANYL [Suspect]
     Indication: SEDATION
     Dosage: TOTAL DOSE = 130 MCG/KG
     Route: 042
  5. CHLOROHYDRATE [Suspect]
     Route: 042

REACTIONS (14)
  - AGITATION [None]
  - AUTOMATISM EPILEPTIC [None]
  - DYSKINESIA [None]
  - ENCEPHALOPATHY [None]
  - HALLUCINATION, VISUAL [None]
  - INAPPROPRIATE AFFECT [None]
  - INSOMNIA [None]
  - MYOCLONUS [None]
  - NO THERAPEUTIC RESPONSE [None]
  - SLEEP ATTACKS [None]
  - STATUS EPILEPTICUS [None]
  - STEREOTYPY [None]
  - TARDIVE DYSKINESIA [None]
  - UNRESPONSIVE TO STIMULI [None]
